FAERS Safety Report 17680840 (Version 1)
Quarter: 2020Q2

REPORT INFORMATION
  Report Type: Spontaneous
  Country: US (occurrence: US)
  Receive Date: 20200417
  Receipt Date: 20200417
  Transmission Date: 20200714
  Serious: No
  Sender: FDA-Public Use
  Company Number: US-ASTRAZENECA-2020SE51953

PATIENT
  Sex: Male

DRUGS (1)
  1. SYMBICORT [Suspect]
     Active Substance: BUDESONIDE\FORMOTEROL FUMARATE DIHYDRATE
     Indication: ASTHMA
     Dosage: 2 PUFFS
     Route: 055
     Dates: start: 20200406

REACTIONS (6)
  - Abdominal distension [Unknown]
  - Dyspnoea [Recovering/Resolving]
  - Ill-defined disorder [Unknown]
  - Swelling face [Recovering/Resolving]
  - Malaise [Unknown]
  - Intentional product misuse [Unknown]
